FAERS Safety Report 6142901-2 (Version None)
Quarter: 2009Q2

REPORT INFORMATION
  Report Type: 
  Country: None (occurrence: None)
  Receive Date: 20090403
  Receipt Date: 20090325
  Transmission Date: 20091009
  Serious: Yes (Hospitalization)
  Sender: FDA-Public Use
  Company Number: DE-JNJFOC-20090306520

PATIENT
  Age: 76 Year
  Sex: Female
  Weight: 50 kg

DRUGS (2)
  1. DOLORMIN EXTRA 400 MG [Suspect]
     Dosage: 800-1200 MG A DAY
     Route: 048
  2. DOLORMIN EXTRA 400 MG [Suspect]
     Indication: BONE PAIN
     Route: 048

REACTIONS (1)
  - GASTRIC ULCER HAEMORRHAGE [None]
